FAERS Safety Report 24974237 (Version 1)
Quarter: 2025Q1

REPORT INFORMATION
  Report Type: Spontaneous
  Country: FR (occurrence: FR)
  Receive Date: 20250217
  Receipt Date: 20250217
  Transmission Date: 20250409
  Serious: Yes (Hospitalization)
  Sender: NOVARTIS
  Company Number: None

PATIENT
  Age: 84 Year
  Sex: Female
  Weight: 65.8 kg

DRUGS (7)
  1. TRILEPTAL [Suspect]
     Active Substance: OXCARBAZEPINE
     Indication: Trigeminal neuralgia
     Dosage: 600 MG, QD (MAJORATION PROGRESSIVE TOUTES LES 4 JOURS JUSQU^? 300MG MATIN ET SOIR)
     Route: 048
     Dates: start: 20241125, end: 20241218
  2. AMITRIPTYLINE HYDROCHLORIDE [Suspect]
     Active Substance: AMITRIPTYLINE HYDROCHLORIDE
     Indication: Trigeminal neuralgia
     Dosage: 10 DRP, QD (1/12 MILLILITRE), (5 ? 15 GOUTTES PAR JOUR)
     Route: 048
     Dates: start: 202306, end: 20241218
  3. SECTRAL [Concomitant]
     Active Substance: ACEBUTOLOL HYDROCHLORIDE
     Indication: Hypertension
     Route: 048
  4. HYDROCHLOROTHIAZIDE\IRBESARTAN [Concomitant]
     Active Substance: HYDROCHLOROTHIAZIDE\IRBESARTAN
     Indication: Hypertension
     Dosage: 1 DOSAGE FORM, QD (300 MG/12,5 MG, COMPRIM?)
     Route: 048
  5. FENOFIBRATE [Concomitant]
     Active Substance: FENOFIBRATE
     Indication: Product used for unknown indication
     Route: 048
  6. DESLORATADINE [Concomitant]
     Active Substance: DESLORATADINE
     Indication: Product used for unknown indication
     Route: 048
  7. BACLOFEN [Concomitant]
     Active Substance: BACLOFEN
     Indication: Product used for unknown indication
     Dosage: 10 MG, QD
     Route: 048

REACTIONS (2)
  - Hyponatraemia [Recovered/Resolved]
  - Altered state of consciousness [Recovered/Resolved]

NARRATIVE: CASE EVENT DATE: 20241215
